FAERS Safety Report 7457548-5 (Version None)
Quarter: 2011Q1

REPORT INFORMATION
  Report Type: 
  Country: None (occurrence: None)
  Receive Date: 20110302
  Receipt Date: 20101112
  Transmission Date: 20110831
  Serious: Yes (Death)
  Sender: FDA-Public Use
  Company Number: 163-21880-10111830

PATIENT
  Age: 72 Year
  Sex: Male

DRUGS (7)
  1. REVLIMID [Suspect]
     Indication: MULTIPLE MYELOMA
     Dosage: 10 MG, 1 IN 1 D, PO
     Route: 048
     Dates: start: 20091217, end: 20100115
  2. TERAZOSIN HCL [Concomitant]
  3. AZTELIN (AZELASTINE HYDROCHLORIDE) [Concomitant]
  4. MEGESTROL ACETATE [Concomitant]
  5. COMPAZINE [Concomitant]
  6. DEXAMETHASONE [Concomitant]
  7. LASIX [Concomitant]

REACTIONS (1)
  - DEATH [None]
